FAERS Safety Report 8522213-X (Version None)
Quarter: 2012Q3

REPORT INFORMATION
  Report Type: 
  Country: None (occurrence: None)
  Receive Date: 20120719
  Receipt Date: 20120705
  Transmission Date: 20120928
  Serious: Yes (Hospitalization, Other)
  Sender: FDA-Public Use
  Company Number: FI-ELI_LILLY_AND_COMPANY-FI201206002724

PATIENT
  Sex: Female

DRUGS (6)
  1. ZIPRASIDONE HYDROCHLORIDE [Concomitant]
     Indication: SCHIZOPHRENIA
     Dosage: 80 MG, BID
     Route: 065
     Dates: start: 20120127
  2. VALPROIC ACID [Concomitant]
     Indication: BIPOLAR DISORDER
     Dosage: 300 MG, QD
     Dates: start: 20090101
  3. VALPROIC ACID [Concomitant]
     Dosage: 500 MG, QD
     Dates: start: 20090101
  4. VALPROIC ACID [Concomitant]
     Dosage: 1500 MG, QD
     Route: 065
     Dates: start: 20120125
  5. ETHANOL [Concomitant]
  6. OLANZAPINE [Suspect]
     Indication: SCHIZOPHRENIA
     Dosage: 405 MG, 2/M
     Route: 030
     Dates: start: 20120119, end: 20120529

REACTIONS (14)
  - DISORIENTATION [None]
  - RESTLESSNESS [None]
  - PAIN IN EXTREMITY [None]
  - OVERDOSE [None]
  - NAUSEA [None]
  - RESPIRATORY RATE INCREASED [None]
  - HEART RATE INCREASED [None]
  - CONFUSIONAL STATE [None]
  - MUSCULAR WEAKNESS [None]
  - ANXIETY [None]
  - SOMNOLENCE [None]
  - DYSARTHRIA [None]
  - MALAISE [None]
  - FATIGUE [None]
